FAERS Safety Report 13190844 (Version 1)
Quarter: 2017Q1

REPORT INFORMATION
  Report Type: Spontaneous
  Country: FI (occurrence: FI)
  Receive Date: 20170206
  Receipt Date: 20170206
  Transmission Date: 20170428
  Serious: Yes (Hospitalization)
  Sender: FDA-Public Use
  Company Number: FI-BAXTER-2017BAX004185

PATIENT
  Age: 56 Year
  Sex: Male

DRUGS (2)
  1. NATRIUMKLORID BAXTER 9 MG/ML INFUUSIONESTE, LIUOS [Suspect]
     Active Substance: SODIUM CHLORIDE
     Indication: DEVICE PRIMING
     Dosage: 9 MG/ML
     Route: 010
  2. BICART 720 [Suspect]
     Active Substance: SODIUM BICARBONATE
     Indication: HAEMODIALYSIS
     Route: 010

REACTIONS (2)
  - Haemodialysis complication [Unknown]
  - Haemolysis [Unknown]

NARRATIVE: CASE EVENT DATE: 20170124
